FAERS Safety Report 20858489 (Version 1)
Quarter: 2022Q2

REPORT INFORMATION
  Report Type: Spontaneous
  Country: FR (occurrence: FR)
  Receive Date: 20220521
  Receipt Date: 20220521
  Transmission Date: 20220721
  Serious: Yes (Hospitalization, Other)
  Sender: FDA-Public Use
  Company Number: None

PATIENT
  Age: 42 Year
  Sex: Female
  Weight: 61 kg

DRUGS (2)
  1. ANTI-THYMOCYTE GLOBULIN (RABBIT) NOS [Suspect]
     Active Substance: LAPINE T-LYMPHOCYTE IMMUNE GLOBULIN
     Indication: Stem cell transplant
     Dosage: UNKNOWN
     Route: 042
     Dates: start: 20220107, end: 20220108
  2. EVUSHELD [Suspect]
     Active Substance: CILGAVIMAB\TIXAGEVIMAB
     Indication: Stem cell transplant
     Dosage: UNKNOWN
     Route: 042
     Dates: start: 20220107, end: 20220108

REACTIONS (2)
  - Polyarthritis [Recovered/Resolved]
  - Pyrexia [Recovered/Resolved]
